FAERS Safety Report 9471144 (Version 1)
Quarter: 2013Q3

REPORT INFORMATION
  Report Type: Spontaneous
  Country: AT (occurrence: AT)
  Receive Date: 20130822
  Receipt Date: 20130822
  Transmission Date: 20140515
  Serious: Yes (Hospitalization)
  Sender: FDA-Public Use
  Company Number: AT-TEVA-426315ISR

PATIENT
  Age: 60 Year
  Sex: Female

DRUGS (3)
  1. OXALIPLATIN [Suspect]
     Indication: COLON CANCER
     Route: 065
  2. PREDNISOLONE [Concomitant]
     Indication: LARYNGOSPASM
     Dosage: 250MG
     Route: 042
  3. PREDNISOLONE [Concomitant]
     Indication: BRONCHOSPASM
     Dosage: 250MG
     Route: 042

REACTIONS (5)
  - Muscle spasms [Recovered/Resolved]
  - Laryngospasm [Recovered/Resolved]
  - Bronchospasm [Recovered/Resolved]
  - Asthenia [Unknown]
  - Muscle atrophy [Unknown]
